FAERS Safety Report 8902239 (Version 1)
Quarter: 2012Q4

REPORT INFORMATION
  Report Type: 
  Country: IT (occurrence: IT)
  Receive Date: 20121113
  Receipt Date: 20121113
  Transmission Date: 20130627
  Serious: Yes (Other)
  Sender: FDA-Public Use
  Company Number: PHHY2012IT101163

PATIENT
  Age: 0 Year
  Sex: Female

DRUGS (4)
  1. SANDOSTATINA [Suspect]
     Dosage: 3.5 ug/hr, 7 mcg in 2 hours (1 mcg/Kg/hour)
     Dates: start: 20120925, end: 20120925
  2. RANIDIL [Concomitant]
     Route: 042
  3. CEFAMEZIN [Concomitant]
     Route: 030
  4. IDROPLURIVIT [Concomitant]
     Route: 048

REACTIONS (2)
  - Cyanosis [Recovering/Resolving]
  - Vasospasm [Recovering/Resolving]
